FAERS Safety Report 6826354-4 (Version None)
Quarter: 2010Q3

REPORT INFORMATION
  Report Type: 
  Country: None (occurrence: None)
  Receive Date: 20100709
  Receipt Date: 20100705
  Transmission Date: 20110219
  Serious: Yes (Death, Hospitalization)
  Sender: FDA-Public Use
  Company Number: IT-BRISTOL-MYERS SQUIBB COMPANY-15157233

PATIENT
  Age: 59 Year
  Sex: Male

DRUGS (1)
  1. BARACLUDE [Suspect]
     Indication: HEPATITIS B
     Dates: start: 20100505

REACTIONS (3)
  - OESOPHAGEAL VARICES HAEMORRHAGE [None]
  - PNEUMONIA ASPIRATION [None]
  - SEPTIC SHOCK [None]
